FAERS Safety Report 16156499 (Version 1)
Quarter: 2019Q2

REPORT INFORMATION
  Report Type: Spontaneous
  Country: US (occurrence: US)
  Receive Date: 20190404
  Receipt Date: 20190404
  Transmission Date: 20190711
  Serious: No
  Sender: FDA-Public Use
  Company Number: US-BRISTOL-MYERS SQUIBB COMPANY-BMS-2019-033337

PATIENT
  Sex: Female

DRUGS (1)
  1. SPRYCEL [Suspect]
     Active Substance: DASATINIB
     Indication: ANAL CANCER
     Dosage: 100 MILLIGRAM, QD
     Route: 048

REACTIONS (3)
  - Rash generalised [Unknown]
  - Product use in unapproved indication [Unknown]
  - Rash pruritic [Unknown]
